FAERS Safety Report 9500483 (Version 1)
Quarter: 2013Q3

REPORT INFORMATION
  Report Type: Spontaneous
  Country: US (occurrence: US)
  Receive Date: 20130905
  Receipt Date: 20130905
  Transmission Date: 20140515
  Serious: Yes (Other)
  Sender: FDA-Public Use
  Company Number: US-BAYER-2013-106588

PATIENT
  Age: 30 Year
  Sex: Female
  Weight: 123.36 kg

DRUGS (11)
  1. YASMIN [Suspect]
  2. EFFEXOR XR [Concomitant]
     Dosage: 75 MG, UNK
     Route: 048
  3. ALLEGRA [Concomitant]
     Dosage: 180 MG, DAILY
     Route: 048
     Dates: start: 20050301, end: 20050721
  4. ALLEGRA [Concomitant]
     Dosage: 1/80 MG QD ( EVERY DAY
     Route: 048
  5. MECLIZINE [Concomitant]
     Dosage: 25 MG, TID 5 DAYS, THEN TID PRN DIZZINESS
     Route: 048
  6. MECLIZINE [Concomitant]
     Dosage: , FOR 5B DAYS, THEN TID PRN25 MG, TID
     Route: 048
     Dates: start: 20050506, end: 20050624
  7. LORATADIN [Concomitant]
     Dosage: 10 MG, QD
     Route: 048
  8. SINEMET [Concomitant]
     Dosage: 25/100 UAD (INTERPRETED AS USE AS DIRECTED)
  9. NEXIUM [Concomitant]
     Dosage: 40 MG, QD
     Route: 048
  10. METFORMIN [Concomitant]
     Dosage: 1000 MG, BID
  11. FLONASE [Concomitant]
     Dosage: QD

REACTIONS (1)
  - Deep vein thrombosis [Recovered/Resolved]
